FAERS Safety Report 6510362-7 (Version None)
Quarter: 2009Q4

REPORT INFORMATION
  Report Type: 
  Country: None (occurrence: None)
  Receive Date: 20091222
  Receipt Date: 20091006
  Transmission Date: 20100525
  Serious: No
  Sender: FDA-Public Use
  Company Number: US-ASTRAZENECA-2009SE18169

PATIENT
  Age: 50 Year
  Sex: Male

DRUGS (8)
  1. ROSUVASTATIN [Suspect]
     Indication: DYSLIPIDAEMIA
  2. ATENOLOL [Concomitant]
  3. AMLODIPINE [Concomitant]
  4. WARFARIN SODIUM [Concomitant]
  5. ALLOPURINOL [Concomitant]
  6. METFORMIN HCL [Concomitant]
  7. GABAPENTIN [Concomitant]
  8. ACETAMINOPHEN AND HYDROCODONE BITARTRATE [Concomitant]
     Dosage: 5/500 MG AS NEEDED

REACTIONS (2)
  - IRON DEFICIENCY ANAEMIA [None]
  - THROMBOCYTOSIS [None]
